FAERS Safety Report 5524773-X (Version None)
Quarter: 2007Q4

REPORT INFORMATION
  Report Type: 
  Country: None (occurrence: None)
  Receive Date: 20071123
  Receipt Date: 20071117
  Transmission Date: 20080405
  Serious: Yes (Other)
  Sender: FDA-Public Use
  Company Number: PHRM2007FR02616

PATIENT
  Age: 62 Year
  Sex: Female

DRUGS (3)
  1. STRONTIUM RANELATE [Concomitant]
     Indication: OSTEOPOROSIS PROPHYLAXIS
     Route: 048
  2. KETOPROFEN [Concomitant]
     Indication: MIGRAINE
     Dosage: UNK, PRN
     Route: 048
  3. DESERNIL-SANDOZ [Suspect]
     Indication: MIGRAINE
     Dosage: 1.65 MG, QD
     Route: 048

REACTIONS (1)
  - CREATININE RENAL CLEARANCE DECREASED [None]
